FAERS Safety Report 8839314 (Version 2)
Quarter: 2012Q4

REPORT INFORMATION
  Report Type: Report from Study
  Country: US (occurrence: US)
  Receive Date: 20121015
  Receipt Date: 20121026
  Transmission Date: 20130627
  Serious: Yes (Hospitalization)
  Sender: FDA-Public Use
  Company Number: US-JNJFOC-20121007257

PATIENT
  Age: 12 Year
  Sex: Female
  Weight: 37.4 kg

DRUGS (5)
  1. REMICADE [Suspect]
     Indication: CROHN^S DISEASE
     Route: 042
     Dates: start: 20110601
  2. PREDNISONE [Concomitant]
  3. AZATHIOPRINE [Concomitant]
  4. ANTIBIOTICS [Concomitant]
  5. VITAMIN D [Concomitant]

REACTIONS (1)
  - Crohn^s disease [Recovered/Resolved]
